FAERS Safety Report 8257435-9 (Version None)
Quarter: 2012Q2

REPORT INFORMATION
  Report Type: 
  Country: None (occurrence: None)
  Receive Date: 20120403
  Receipt Date: 20120327
  Transmission Date: 20120825
  Serious: Yes (Other)
  Sender: FDA-Public Use
  Company Number: US-ROCHE-1053638

PATIENT
  Sex: Female

DRUGS (4)
  1. XOLAIR [Suspect]
     Indication: PRODUCT USED FOR UNKNOWN INDICATION
     Route: 058
  2. BENADRYL [Concomitant]
     Route: 065
  3. SOLU-MEDROL [Concomitant]
     Route: 065
  4. PEPCID [Concomitant]
     Route: 065

REACTIONS (4)
  - SENSATION OF FOREIGN BODY [None]
  - RESPIRATORY DISTRESS [None]
  - PARAESTHESIA [None]
  - ANAPHYLACTIC REACTION [None]
